FAERS Safety Report 20884819 (Version 1)
Quarter: 2022Q2

REPORT INFORMATION
  Report Type: Report from Study
  Country: BR (occurrence: BR)
  Receive Date: 20220527
  Receipt Date: 20220527
  Transmission Date: 20220720
  Serious: Yes (Other)
  Sender: FDA-Public Use
  Company Number: BR-UCBSA-2022029269

PATIENT
  Age: 45 Year
  Sex: Female
  Weight: 94 kg

DRUGS (12)
  1. CERTOLIZUMAB PEGOL [Suspect]
     Active Substance: CERTOLIZUMAB PEGOL
     Indication: Rheumatoid arthritis
     Dosage: 200 MILLIGRAM, EV 15 DAYS
     Route: 058
     Dates: start: 20201208
  2. GLICLAZIDE [Concomitant]
     Active Substance: GLICLAZIDE
     Indication: Diabetes mellitus
     Dosage: 30 MILLIGRAM, 2X/DAY (BID)
     Route: 048
  3. GLIFAGE [Concomitant]
     Active Substance: METFORMIN HYDROCHLORIDE
     Indication: Diabetes mellitus
     Dosage: 500 MILLIGRAM, 3X/DAY (TID)
     Route: 048
  4. HYDROCHLOROTHIAZIDE [Concomitant]
     Active Substance: HYDROCHLOROTHIAZIDE
     Indication: Hypertension
     Dosage: 30 MILLIGRAM, ONCE DAILY (QD)
     Route: 048
  5. LOSARTAN [Concomitant]
     Active Substance: LOSARTAN
     Indication: Hypertension
     Dosage: 50 MILLIGRAM, ONCE DAILY (QD)
     Route: 048
  6. DUAL [LINDANE] [Concomitant]
     Indication: Fibromyalgia
     Dosage: 1 DOSAGE FORM, ONCE DAILY (QD)
     Route: 048
  7. BUDESONIDE\FORMOTEROL FUMARATE [Concomitant]
     Active Substance: BUDESONIDE\FORMOTEROL FUMARATE
     Indication: Asthma
     Dosage: UNK
  8. UMECLIDINIUM BROMIDE [Concomitant]
     Active Substance: UMECLIDINIUM BROMIDE
     Indication: Asthma
     Dosage: UNK
  9. TRAMADOL [Concomitant]
     Active Substance: TRAMADOL
     Indication: Asthma
     Dosage: 400 MILLIGRAM, ONCE DAILY (QD)
     Route: 048
  10. FEXOFENADINE HYDROCHLORIDE [Concomitant]
     Active Substance: FEXOFENADINE HYDROCHLORIDE
     Indication: Pneumonia
     Dosage: 1 DOSAGE FORM, 5X/WEEK
     Route: 048
  11. CEFTRIAXONE SODIUM [Concomitant]
     Active Substance: CEFTRIAXONE SODIUM
     Indication: Pneumonia
     Dosage: 1 DOSAGE FORM, 5X/WEEK
     Route: 030
  12. ACETYLCYSTEINE [Concomitant]
     Active Substance: ACETYLCYSTEINE
     Indication: Pneumonia
     Dosage: 600 MILLIGRAM, 5X/WEEK
     Route: 048

REACTIONS (4)
  - Pneumonia [Recovered/Resolved]
  - COVID-19 [Not Recovered/Not Resolved]
  - Pharyngeal injury [Not Recovered/Not Resolved]
  - Pharyngitis bacterial [Not Recovered/Not Resolved]

NARRATIVE: CASE EVENT DATE: 20210219
